FAERS Safety Report 8269538-3 (Version None)
Quarter: 2012Q2

REPORT INFORMATION
  Report Type: 
  Country: None (occurrence: None)
  Receive Date: 20120409
  Receipt Date: 20120326
  Transmission Date: 20120825
  Serious: Yes (Hospitalization)
  Sender: FDA-Public Use
  Company Number: PT-BAXTER-2012BH007714

PATIENT
  Age: 58 Year
  Sex: Male

DRUGS (2)
  1. PHYSIONEAL 35 GLUCOSE 1,36% P/V/ 13,6 MG/ML [Suspect]
     Dosage: 2,5L VIAFLEX APD 10L/DAY
     Route: 033
     Dates: start: 20060601
  2. EXTRANEAL [Suspect]
     Dosage: 2L VIAFLEX APD 2L/DAY
     Route: 033
     Dates: start: 20060601

REACTIONS (1)
  - PERITONITIS BACTERIAL [None]
